FAERS Safety Report 23723715 (Version 2)
Quarter: 2024Q2

REPORT INFORMATION
  Report Type: Spontaneous
  Country: DE (occurrence: DE)
  Receive Date: 20240409
  Receipt Date: 20240514
  Transmission Date: 20240715
  Serious: Yes (Other)
  Sender: FDA-Public Use
  Company Number: DE-MEDAC-2024-AER-00551

PATIENT
  Age: 27 Year
  Sex: Female

DRUGS (1)
  1. METHOTREXATE SODIUM [Suspect]
     Active Substance: METHOTREXATE SODIUM
     Indication: Rheumatoid arthritis
     Dosage: 10 MG, START OF THERAPY 5 WEEKS AGO (COUNTED FROM THE DATE OF REPORTING)
     Dates: start: 202402

REACTIONS (4)
  - Haematochezia [Recovered/Resolved]
  - Dizziness [Not Recovered/Not Resolved]
  - Haemorrhage [Recovered/Resolved]
  - Platelet count decreased [Not Recovered/Not Resolved]

NARRATIVE: CASE EVENT DATE: 20240201
